FAERS Safety Report 14304846 (Version 1)
Quarter: 2017Q4

REPORT INFORMATION
  Report Type: Spontaneous
  Country: JP (occurrence: JP)
  Receive Date: 20171219
  Receipt Date: 20171219
  Transmission Date: 20180321
  Serious: Yes (Other)
  Sender: FDA-Public Use
  Company Number: JP-OTSUKA-008792

PATIENT
  Age: 59 Year
  Sex: Male

DRUGS (30)
  1. LASIX [Concomitant]
     Active Substance: FUROSEMIDE
     Dosage: 40 MG, QD
     Route: 048
     Dates: start: 20091021, end: 20091027
  2. LASIX [Concomitant]
     Active Substance: FUROSEMIDE
     Dosage: 20 MG, QD
     Route: 048
     Dates: start: 20091028, end: 20091128
  3. RISPERDAL [Concomitant]
     Active Substance: RISPERIDONE
     Dosage: 4-8 MG, DAILY DOSE
     Route: 048
     Dates: start: 20091128, end: 20091218
  4. LASIX [Concomitant]
     Active Substance: FUROSEMIDE
     Indication: CARDIAC FAILURE
     Dosage: 60 MG, QD
     Route: 048
     Dates: start: 20091014, end: 20091020
  5. ALDACTONE-A [Concomitant]
     Active Substance: SPIRONOLACTONE
     Dosage: 75 MG, QD
     Route: 048
     Dates: start: 20091021, end: 20091027
  6. HANP [Concomitant]
     Active Substance: CARPERITIDE
     Indication: CARDIAC FAILURE
     Dosage: 3000 UG, QD
     Route: 041
     Dates: start: 20091009, end: 20091013
  7. CEREB [Concomitant]
     Indication: SCHIZOPHRENIA
     Dosage: 400-800 MG, DAILY DOSE
     Route: 048
     Dates: start: 20091106
  8. ABILIFY [Suspect]
     Active Substance: ARIPIPRAZOLE
     Dosage: 24 MG, QD
     Route: 048
     Dates: start: 20091023, end: 20091105
  9. ABILIFY [Suspect]
     Active Substance: ARIPIPRAZOLE
     Dosage: 30 MG, QD
     Route: 048
     Dates: start: 20091106, end: 20091222
  10. DEPAKENE [Concomitant]
     Active Substance: VALPROIC ACID
     Indication: SCHIZOPHRENIA
     Dosage: 400-800 MG, DAILY DOSE
     Route: 048
     Dates: start: 20091030, end: 20091105
  11. RISPERDAL [Concomitant]
     Active Substance: RISPERIDONE
     Dosage: 6 MG, BID
     Route: 048
     Dates: start: 20100113
  12. ABILIFY [Suspect]
     Active Substance: ARIPIPRAZOLE
     Dosage: 18 MG, QD
     Route: 048
     Dates: start: 20091014, end: 20091022
  13. ABILIFY [Suspect]
     Active Substance: ARIPIPRAZOLE
     Dosage: 24 MG, QD
     Route: 048
     Dates: start: 20091223, end: 20100109
  14. NOVO HEPARIN [Concomitant]
     Active Substance: HEPARIN SODIUM
     Indication: CARDIAC FAILURE
     Dosage: 1500 IU, QD
     Route: 041
     Dates: start: 20091009, end: 20091013
  15. MICARDIS [Concomitant]
     Active Substance: TELMISARTAN
     Indication: CARDIAC FAILURE
     Dosage: 40 MG, QD
     Route: 048
     Dates: start: 20091014, end: 20091124
  16. LOPEMIN [Concomitant]
     Active Substance: LOPERAMIDE HYDROCHLORIDE
     Indication: DIARRHOEA
     Dosage: 1 MG, TID
     Route: 048
     Dates: start: 20091221
  17. ABILIFY [Suspect]
     Active Substance: ARIPIPRAZOLE
     Indication: SCHIZOPHRENIA
     Dosage: 12 MG, QD
     Route: 048
     Dates: start: 20091010, end: 20091013
  18. ABILIFY [Suspect]
     Active Substance: ARIPIPRAZOLE
     Dosage: 12 MG, QD
     Route: 048
     Dates: start: 20100110, end: 20100115
  19. LASIX [Concomitant]
     Active Substance: FUROSEMIDE
     Indication: CARDIAC FAILURE
     Dosage: 20 MG, QD
     Route: 041
     Dates: start: 20091009, end: 20091013
  20. LASIX [Concomitant]
     Active Substance: FUROSEMIDE
     Dosage: 10 MG, QD
     Route: 048
     Dates: start: 20091129, end: 20100105
  21. ADALAT CC [Concomitant]
     Active Substance: NIFEDIPINE
     Indication: CARDIAC FAILURE
     Dosage: 20 MG, QD
     Route: 048
     Dates: start: 20091125, end: 20091215
  22. ALBUMIN TANNATE [Concomitant]
     Active Substance: ALBUMIN BOVINE\TANNIC ACID
     Indication: DIARRHOEA
     Dosage: 1 G, TID
     Route: 048
     Dates: start: 20091216
  23. BAYASPIRIN [Concomitant]
     Active Substance: ASPIRIN
     Indication: CARDIAC FAILURE
     Dosage: 100 MG, QD
     Route: 048
     Dates: start: 20091014
  24. RISPERDAL [Concomitant]
     Active Substance: RISPERIDONE
     Indication: SCHIZOPHRENIA
     Dosage: 1 MG, BID
     Route: 048
     Dates: start: 20091113, end: 20091118
  25. RISPERDAL [Concomitant]
     Active Substance: RISPERIDONE
     Dosage: 4 MG, BID
     Route: 048
     Dates: start: 20091219, end: 20100112
  26. ALDACTONE-A [Concomitant]
     Active Substance: SPIRONOLACTONE
     Indication: CARDIAC FAILURE
     Dosage: 25 MG, QD
     Route: 048
     Dates: start: 20091014, end: 20091020
  27. ALDACTONE-A [Concomitant]
     Active Substance: SPIRONOLACTONE
     Dosage: 100 MG, QD
     Route: 048
     Dates: start: 20091028
  28. MICARDIS [Concomitant]
     Active Substance: TELMISARTAN
     Dosage: 40 MG, QD
     Route: 048
     Dates: start: 20091216
  29. RISPERDAL [Concomitant]
     Active Substance: RISPERIDONE
     Dosage: 2 MG, BID
     Route: 048
     Dates: start: 20091119, end: 20091127
  30. MIYA-BM [Concomitant]
     Active Substance: CLOSTRIDIUM BUTYRICUM SPORES STRAIN M-55
     Indication: DIARRHOEA
     Dosage: 1 G, TID
     Route: 048
     Dates: start: 20091112

REACTIONS (3)
  - Diarrhoea [Recovering/Resolving]
  - Hypokalaemia [Recovered/Resolved]
  - Blood urea increased [Unknown]

NARRATIVE: CASE EVENT DATE: 20091019
